FAERS Safety Report 21855666 (Version 5)
Quarter: 2023Q4

REPORT INFORMATION
  Report Type: Spontaneous
  Country: US (occurrence: US)
  Receive Date: 20230112
  Receipt Date: 20231207
  Transmission Date: 20240110
  Serious: Yes (Other)
  Sender: FDA-Public Use
  Company Number: US-BRISTOL-MYERS SQUIBB COMPANY-2023-005293

PATIENT
  Age: 82 Year
  Sex: Male
  Weight: 68.04 kg

DRUGS (3)
  1. REVLIMID [Suspect]
     Active Substance: LENALIDOMIDE
     Indication: Plasma cell myeloma
     Dosage: FREQUENCY: EVERY OTHER DAY FOR 21 DAYS, EVERY 28 DAYS?ONGOING
     Route: 048
     Dates: start: 20190801
  2. REVLIMID [Suspect]
     Active Substance: LENALIDOMIDE
     Dosage: FREQUENCY: ONE CAPSULE EVERY OTHER DAY D 1-21 Q 28 DAYS
     Route: 048
     Dates: start: 20190801
  3. REVLIMID [Suspect]
     Active Substance: LENALIDOMIDE
     Dosage: FREQUENCY: ONE CAPSULE EVERY OTHER DAY D 1-21 Q 28 DAYS
     Route: 048
     Dates: start: 20190801

REACTIONS (15)
  - Influenza [Recovered/Resolved]
  - Asthenia [Not Recovered/Not Resolved]
  - Influenza like illness [Not Recovered/Not Resolved]
  - Laboratory test abnormal [Not Recovered/Not Resolved]
  - Product dose omission issue [Unknown]
  - Red blood cell count decreased [Recovering/Resolving]
  - Haemoglobin decreased [Not Recovered/Not Resolved]
  - Diarrhoea [Unknown]
  - Feeding disorder [Unknown]
  - Dyspepsia [Unknown]
  - Balance disorder [Unknown]
  - Blood glucose fluctuation [Unknown]
  - Hypersensitivity [Unknown]
  - Cough [Unknown]
  - Sneezing [Unknown]

NARRATIVE: CASE EVENT DATE: 20221226
